FAERS Safety Report 9323382 (Version 1)
Quarter: 2013Q2

REPORT INFORMATION
  Report Type: Spontaneous
  Country: PK (occurrence: PK)
  Receive Date: 20130603
  Receipt Date: 20130603
  Transmission Date: 20140414
  Serious: Yes (Death)
  Sender: FDA-Public Use
  Company Number: PK-009507513-1305PAK017544

PATIENT
  Age: 19 Year
  Sex: Male

DRUGS (12)
  1. IMIPENEM (+) CILASTATIN SODIUM [Suspect]
     Indication: POST PROCEDURAL PNEUMONIA
     Dosage: UNK
  2. IMIPENEM (+) CILASTATIN SODIUM [Suspect]
     Indication: BACTERAEMIA
  3. TACROLIMUS [Suspect]
     Indication: IMMUNOSUPPRESSION
     Dosage: UNK
  4. CYCLOSPORINE [Suspect]
     Indication: IMMUNOSUPPRESSION
     Dosage: UNK
  5. PREDNISONE [Suspect]
     Indication: IMMUNOSUPPRESSION
     Dosage: UNK
  6. ATENOLOL [Suspect]
     Dosage: UNK
  7. AMLODIPINE [Suspect]
     Dosage: UNK
  8. CEFTRIAXONE SODIUM [Concomitant]
     Dosage: UNK, Q12H
  9. VANCOMYCIN [Suspect]
  10. LEVOFLOXACIN [Suspect]
  11. SULFAMETHOXAZOLE (+) TRIMETHOPRIM [Suspect]
  12. AMPHOTERICIN B [Suspect]

REACTIONS (1)
  - Drug ineffective [Fatal]
